FAERS Safety Report 12544995 (Version 9)
Quarter: 2017Q1

REPORT INFORMATION
  Report Type: Spontaneous
  Country: US (occurrence: US)
  Receive Date: 20160711
  Receipt Date: 20170118
  Transmission Date: 20170428
  Serious: Yes (Hospitalization)
  Sender: FDA-Public Use
  Company Number: US-UNITED THERAPEUTICS-UNT-2016-010707

PATIENT
  Age: 52 Year
  Sex: Male
  Weight: 162.99 kg

DRUGS (4)
  1. TYVASO [Suspect]
     Active Substance: TREPROSTINIL
     Indication: PULMONARY ARTERIAL HYPERTENSION
     Dosage: 18-54 ?G, QID
     Dates: start: 20160616
  2. TYVASO [Suspect]
     Active Substance: TREPROSTINIL
     Indication: PULMONARY HYPERTENSION
     Dosage: UNK
  3. LETAIRIS [Concomitant]
     Active Substance: AMBRISENTAN
     Indication: PRODUCT USED FOR UNKNOWN INDICATION
  4. REVATIO [Concomitant]
     Active Substance: SILDENAFIL CITRATE
     Indication: PRODUCT USED FOR UNKNOWN INDICATION

REACTIONS (9)
  - Drug ineffective [Unknown]
  - Nausea [Unknown]
  - Pruritus [Unknown]
  - Headache [Unknown]
  - Chest pain [Unknown]
  - Fluid overload [Unknown]
  - Drug dose omission [Unknown]
  - Malaise [Unknown]
  - Renal failure [Unknown]

NARRATIVE: CASE EVENT DATE: 201606
